FAERS Safety Report 25855831 (Version 1)
Quarter: 2025Q3

REPORT INFORMATION
  Report Type: Spontaneous
  Country: CA (occurrence: CA)
  Receive Date: 20250928
  Receipt Date: 20250928
  Transmission Date: 20251020
  Serious: Yes (Death, Other)
  Sender: JOHNSON AND JOHNSON
  Company Number: CA-JNJFOC-20250939824

PATIENT
  Age: 82 Year
  Sex: Male

DRUGS (3)
  1. ABIRATERONE ACETATE [Suspect]
     Active Substance: ABIRATERONE ACETATE
     Indication: Product used for unknown indication
     Route: 048
  2. ELIGARD [Suspect]
     Active Substance: LEUPROLIDE ACETATE
     Indication: Prostate cancer
     Route: 058
  3. PREDNISONE [Concomitant]
     Active Substance: PREDNISONE
     Indication: Product used for unknown indication

REACTIONS (22)
  - Asthenia [Fatal]
  - Blood pressure abnormal [Fatal]
  - Bronchitis [Fatal]
  - Chest pain [Fatal]
  - Diarrhoea [Fatal]
  - Eructation [Fatal]
  - Fatigue [Fatal]
  - Gait disturbance [Fatal]
  - General physical health deterioration [Fatal]
  - Illness [Fatal]
  - Influenza like illness [Fatal]
  - Injection site pain [Fatal]
  - Ligament sprain [Fatal]
  - Limb injury [Fatal]
  - Metastases to bone [Fatal]
  - Muscular weakness [Fatal]
  - Peripheral swelling [Fatal]
  - Productive cough [Fatal]
  - Prostatic specific antigen increased [Fatal]
  - Scab [Fatal]
  - Thyroid hormones decreased [Fatal]
  - Wound secretion [Fatal]
